FAERS Safety Report 11309218 (Version 2)
Quarter: 2015Q3

REPORT INFORMATION
  Report Type: Spontaneous
  Country: US (occurrence: US)
  Receive Date: 20150724
  Receipt Date: 20150727
  Transmission Date: 20151125
  Serious: No
  Sender: FDA-Public Use
  Company Number: US-MERZ NORTH AMERICA, INC.-15MRZ-00292

PATIENT
  Sex: Female

DRUGS (2)
  1. RADIESSE [Concomitant]
     Active Substance: TRIBASIC CALCIUM PHOSPHATE
  2. XEOMIN [Suspect]
     Active Substance: INCOBOTULINUMTOXINA
     Indication: SKIN COSMETIC PROCEDURE
     Dosage: UNKNOWN

REACTIONS (2)
  - Muscular weakness [Unknown]
  - Drug ineffective [Unknown]
